FAERS Safety Report 11692658 (Version 5)
Quarter: 2016Q3

REPORT INFORMATION
  Report Type: Spontaneous
  Country: US (occurrence: US)
  Receive Date: 20151103
  Receipt Date: 20160928
  Transmission Date: 20161109
  Serious: Yes (Congenital Anomaly, Other)
  Sender: FDA-Public Use
  Company Number: PHEH2015US022162

PATIENT
  Sex: Male

DRUGS (5)
  1. ONDANSETRON HYDROCHLORIDE. [Suspect]
     Active Substance: ONDANSETRON HYDROCHLORIDE
     Indication: FOETAL EXPOSURE DURING PREGNANCY
     Dosage: MOTHER DOSE: 4 MG
     Route: 064
  2. ONDANSETRON HYDROCHLORIDE. [Suspect]
     Active Substance: ONDANSETRON HYDROCHLORIDE
     Indication: FOETAL EXPOSURE DURING PREGNANCY
     Route: 064
  3. ONDANSETRON AUROBINDO [Suspect]
     Active Substance: ONDANSETRON HYDROCHLORIDE
     Indication: FOETAL EXPOSURE DURING PREGNANCY
     Dosage: MOTHER^S DOSE: 4 MG, PRN
     Route: 064
  4. ZOFRAN [Suspect]
     Active Substance: ONDANSETRON HYDROCHLORIDE
     Indication: FOETAL EXPOSURE DURING PREGNANCY
     Route: 064
  5. ONDANSETRON [Suspect]
     Active Substance: ONDANSETRON
     Indication: FOETAL EXPOSURE DURING PREGNANCY
     Dosage: MOTHER^S DOSE: 4 MG, PRN
     Route: 064

REACTIONS (19)
  - Multiple congenital abnormalities [Unknown]
  - Heart disease congenital [Unknown]
  - Ventricular septal defect [Unknown]
  - Pulmonary valve incompetence [Unknown]
  - Anhedonia [Unknown]
  - Congenital anomaly [Unknown]
  - Fallot^s tetralogy [Unknown]
  - Pulmonary artery stenosis congenital [Unknown]
  - Cardiac murmur [Unknown]
  - Injury [Unknown]
  - Anxiety [Unknown]
  - Atrial septal defect [Unknown]
  - Selective eating disorder [Unknown]
  - Right ventricular hypertrophy [Unknown]
  - Foetal exposure during pregnancy [Unknown]
  - Eye disorder [Unknown]
  - Asthma [Unknown]
  - Pain [Unknown]
  - Nasal congestion [Unknown]
